FAERS Safety Report 5485251-X (Version None)
Quarter: 2007Q4

REPORT INFORMATION
  Report Type: 
  Country: None (occurrence: None)
  Receive Date: 20071015
  Receipt Date: 20071008
  Transmission Date: 20080405
  Serious: Yes (Other)
  Sender: FDA-Public Use
  Company Number: PHBS2007BR16870

PATIENT
  Age: 44 Year
  Sex: Male

DRUGS (2)
  1. MELLARIL [Suspect]
     Indication: SCHIZOPHRENIA
     Dosage: 100 MG AT NIGHT
     Route: 048
     Dates: start: 19970101
  2. OLCADIL [Suspect]
     Indication: STRESS
     Dosage: 2 MG/DAY

REACTIONS (1)
  - DIABETES MELLITUS [None]
